FAERS Safety Report 17758957 (Version 2)
Quarter: 2020Q2

REPORT INFORMATION
  Report Type: Report from Study
  Country: DE (occurrence: DE)
  Receive Date: 20200508
  Receipt Date: 20200525
  Transmission Date: 20200714
  Serious: Yes (Death, Hospitalization, Other)
  Sender: FDA-Public Use
  Company Number: DE-BEH-2020116885

PATIENT
  Age: 75 Year
  Sex: Female
  Weight: 48 kg

DRUGS (5)
  1. PRIVIGEN [Suspect]
     Active Substance: HUMAN IMMUNOGLOBULIN G
     Indication: MYASTHENIA GRAVIS
     Dosage: 10 GRAM, TOT
     Route: 042
     Dates: start: 20191219, end: 20191219
  2. PRIVIGEN [Suspect]
     Active Substance: HUMAN IMMUNOGLOBULIN G
     Dosage: 10 GRAM, TOT
     Route: 042
     Dates: start: 20200206, end: 20200206
  3. PRIVIGEN [Suspect]
     Active Substance: HUMAN IMMUNOGLOBULIN G
     Indication: NON-HODGKIN^S LYMPHOMA STAGE II
     Dosage: UNK
     Route: 065
     Dates: start: 20151119
  4. HUMAN IMMUNOGLOBULIN (INN) [Suspect]
     Active Substance: HUMAN IMMUNOGLOBULIN G
     Indication: HYPOGAMMAGLOBULINAEMIA
     Dosage: 40 GRAM, QW
     Route: 042
     Dates: end: 20190930
  5. HUMAN IMMUNOGLOBULIN (INN) [Suspect]
     Active Substance: HUMAN IMMUNOGLOBULIN G
     Dosage: 40 GRAM
     Route: 065
     Dates: start: 20200309, end: 20200327

REACTIONS (6)
  - Hemianopia [Fatal]
  - Dementia [Fatal]
  - Neurologic neglect syndrome [Fatal]
  - Pneumonia aspiration [Unknown]
  - Progressive multifocal leukoencephalopathy [Fatal]
  - JC virus CSF test positive [Unknown]

NARRATIVE: CASE EVENT DATE: 20200329
